FAERS Safety Report 5905690-X (Version None)
Quarter: 2008Q4

REPORT INFORMATION
  Report Type: 
  Country: None (occurrence: None)
  Receive Date: 20081001
  Receipt Date: 20081001
  Transmission Date: 20090506
  Serious: No
  Sender: FDA-Public Use
  Company Number: None

PATIENT
  Age: 75 Year
  Sex: Female
  Weight: 81.6475 kg

DRUGS (1)
  1. XYLOCAINE 4% PRESERVATIVE FREE [Suspect]
     Indication: LOCAL ANAESTHESIA
     Dosage: 5 GTTS Q 15 MIN. INTRAOCULAR
     Route: 031
     Dates: start: 20080922, end: 20080922

REACTIONS (1)
  - PROCEDURAL PAIN [None]
